FAERS Safety Report 7276496-7 (Version None)
Quarter: 2011Q1

REPORT INFORMATION
  Report Type: 
  Country: None (occurrence: None)
  Receive Date: 20110131
  Receipt Date: 20110118
  Transmission Date: 20110831
  Serious: Yes (Congenital Anomaly)
  Sender: FDA-Public Use
  Company Number: DSJ-2010-18560

PATIENT
  Age: 39 Year
  Sex: Female

DRUGS (1)
  1. OLMETEC (OLMESARTAN MEDOXOMIL) (TABLET) (OLMESARTAN MEDOXOMIL) [Suspect]
     Indication: HYPERTENSION
     Dosage: 20 MG (20 MG, 1 IN 1 D), PER ORAL
     Route: 048
     Dates: start: 20100921, end: 20101021

REACTIONS (17)
  - AMNIOTIC FLUID VOLUME DECREASED [None]
  - CAESAREAN SECTION [None]
  - FOETAL DISORDER [None]
  - RETINOPATHY CONGENITAL [None]
  - RENAL DYSPLASIA [None]
  - FOETAL DISTRESS SYNDROME [None]
  - HAEMORRHAGE [None]
  - FOETAL GROWTH RESTRICTION [None]
  - MATERNAL DRUGS AFFECTING FOETUS [None]
  - HEART SOUNDS ABNORMAL [None]
  - NEONATAL ANURIA [None]
  - OLIGOHYDRAMNIOS [None]
  - PERITONEAL DIALYSIS [None]
  - PANCREATORENAL SYNDROME [None]
  - CONGENITAL BLADDER ANOMALY [None]
  - RESPIRATORY DISORDER NEONATAL [None]
  - NEONATAL HYPOTENSION [None]
